FAERS Safety Report 9608906 (Version 1)
Quarter: 2013Q4

REPORT INFORMATION
  Report Type: Spontaneous
  Country: IE (occurrence: IE)
  Receive Date: 20131009
  Receipt Date: 20131009
  Transmission Date: 20140711
  Serious: Yes (Other)
  Sender: FDA-Public Use
  Company Number: IE-UCBSA-099288

PATIENT
  Sex: 0

DRUGS (1)
  1. KEPPRA [Suspect]
     Dosage: UNKNOWN DATE

REACTIONS (1)
  - Pyoderma gangrenosum [Unknown]
